FAERS Safety Report 18182527 (Version 4)
Quarter: 2020Q4

REPORT INFORMATION
  Report Type: Report from Study
  Country: US (occurrence: US)
  Receive Date: 20200821
  Receipt Date: 20201014
  Transmission Date: 20210113
  Serious: Yes (Death, Hospitalization, Other)
  Sender: FDA-Public Use
  Company Number: US-GLAXOSMITHKLINE-US2020GSK164963

PATIENT
  Age: 49 Year
  Sex: Female
  Weight: 71.8 kg

DRUGS (11)
  1. ACYCLOVIR. [Concomitant]
     Active Substance: ACYCLOVIR
     Dosage: UNK
     Dates: end: 20200817
  2. ABILIFY [Suspect]
     Active Substance: ARIPIPRAZOLE
     Indication: DEPRESSION
     Dosage: 5 MG, QD
     Route: 048
     Dates: start: 20200601, end: 20200817
  3. FLUCONAZOLE. [Concomitant]
     Active Substance: FLUCONAZOLE
     Dosage: UNK
     Dates: end: 20200817
  4. SYNTHROID [Concomitant]
     Active Substance: LEVOTHYROXINE SODIUM
     Dosage: UNK
     Dates: end: 20200817
  5. BELANTAMAB MAFODOTIN. [Suspect]
     Active Substance: BELANTAMAB MAFODOTIN
     Indication: PLASMA CELL MYELOMA
     Dosage: UNK
     Dates: start: 20200810
  6. LEXAPRO [Suspect]
     Active Substance: ESCITALOPRAM OXALATE
     Indication: DEPRESSION
     Dosage: 10 MG, QD
     Route: 048
     Dates: start: 20200601, end: 20200817
  7. LEVOFLOXACIN. [Concomitant]
     Active Substance: LEVOFLOXACIN
     Dosage: UNK
     Dates: end: 20200817
  8. ESTRADIOL. [Concomitant]
     Active Substance: ESTRADIOL
     Dosage: UNK
     Dates: end: 20200817
  9. ASPIRIN. [Concomitant]
     Active Substance: ASPIRIN
     Dosage: UNK
     Dates: end: 20200817
  10. MEDROXYPROGESTERONE [Concomitant]
     Active Substance: MEDROXYPROGESTERONE
     Dosage: UNK
     Dates: end: 20200817
  11. VEMLIDY [Concomitant]
     Active Substance: TENOFOVIR ALAFENAMIDE FUMARATE
     Dosage: UNK
     Dates: end: 20200817

REACTIONS (23)
  - Confusional state [Not Recovered/Not Resolved]
  - Ankle fracture [Not Recovered/Not Resolved]
  - Anaemia [Recovering/Resolving]
  - Platelet count decreased [Not Recovered/Not Resolved]
  - Facial paresis [Not Recovered/Not Resolved]
  - Agitation [Not Recovered/Not Resolved]
  - Nausea [Recovered/Resolved]
  - Dysphagia [Not Recovered/Not Resolved]
  - Muscular weakness [Not Recovered/Not Resolved]
  - Lethargy [Not Recovered/Not Resolved]
  - Dysarthria [Not Recovered/Not Resolved]
  - Platelet count decreased [Not Recovered/Not Resolved]
  - Restlessness [Not Recovered/Not Resolved]
  - Vision blurred [Not Recovered/Not Resolved]
  - White blood cell count decreased [Not Recovered/Not Resolved]
  - Progressive multifocal leukoencephalopathy [Fatal]
  - Apnoea [Recovered/Resolved]
  - Headache [Not Recovered/Not Resolved]
  - Dysphonia [Not Recovered/Not Resolved]
  - Dry mouth [Not Recovered/Not Resolved]
  - Decreased appetite [Not Recovered/Not Resolved]
  - Muscular weakness [Not Recovered/Not Resolved]
  - Hypotension [Not Recovered/Not Resolved]

NARRATIVE: CASE EVENT DATE: 20200811
